FAERS Safety Report 23371566 (Version 2)
Quarter: 2024Q1

REPORT INFORMATION
  Report Type: Spontaneous
  Country: CN (occurrence: CN)
  Receive Date: 20240105
  Receipt Date: 20240111
  Transmission Date: 20240410
  Serious: Yes (Other)
  Sender: FDA-Public Use
  Company Number: CN-009507513-2401CHN000782

PATIENT
  Age: 35 Year
  Sex: Female
  Weight: 44 kg

DRUGS (4)
  1. KEYTRUDA [Suspect]
     Active Substance: PEMBROLIZUMAB
     Indication: Breast cancer
     Dosage: 200 MG, ONCE, D1
     Route: 041
     Dates: start: 20231125, end: 20231125
  2. CYCLOPHOSPHAMIDE [Suspect]
     Active Substance: CYCLOPHOSPHAMIDE
     Indication: Breast cancer
     Dosage: 840 MG, ONCE, D1; MANUFACTURE: BAXTER ONCOLOGY GMBH
     Route: 041
     Dates: start: 20231125, end: 20231125
  3. EPIRUBICIN HYDROCHLORIDE [Suspect]
     Active Substance: EPIRUBICIN HYDROCHLORIDE
     Indication: Breast cancer
     Dosage: 125 MG, ONCE, D1; MANUFACTURE: PFIZER PHARMACEUTICAL (WUXI) CO., LTD
     Route: 041
     Dates: start: 20231125, end: 20231125
  4. SODIUM CHLORIDE [Concomitant]
     Active Substance: SODIUM CHLORIDE
     Indication: Medication dilution
     Dosage: 100 ML, ONCE (ALSO REPORTED AS TID), D1; MANUFACTURE: SICHUAN KELUN PHARMACEUTICAL CO.,LTD.
     Route: 041
     Dates: start: 20231125, end: 20231125

REACTIONS (2)
  - White blood cell count decreased [Recovering/Resolving]
  - Neutrophil count decreased [Recovering/Resolving]

NARRATIVE: CASE EVENT DATE: 20231215
